FAERS Safety Report 22094209 (Version 1)
Quarter: 2023Q1

REPORT INFORMATION
  Report Type: Spontaneous
  Country: US (occurrence: US)
  Receive Date: 20230314
  Receipt Date: 20230314
  Transmission Date: 20230418
  Serious: Yes (Other)
  Sender: FDA-Public Use
  Company Number: US-009507513-2303USA002528

PATIENT
  Age: 83 Year
  Sex: Male

DRUGS (4)
  1. TRUSOPT [Suspect]
     Active Substance: DORZOLAMIDE HYDROCHLORIDE
     Indication: Open angle glaucoma
     Dosage: IN EACH EYE
  2. BRIMONIDINE [Concomitant]
     Active Substance: BRIMONIDINE TARTRATE
     Indication: Open angle glaucoma
     Dosage: IN EACH EYE
  3. LATANOPROST [Concomitant]
     Active Substance: LATANOPROST
     Indication: Open angle glaucoma
     Dosage: IN EACH EYE
  4. NETARSUDIL [Concomitant]
     Active Substance: NETARSUDIL
     Indication: Open angle glaucoma
     Dosage: IN EACH EYE

REACTIONS (4)
  - Ocular surface disease [Unknown]
  - Drug intolerance [Unknown]
  - Treatment noncompliance [Unknown]
  - Product use issue [Unknown]
